FAERS Safety Report 21334889 (Version 1)
Quarter: 2022Q3

REPORT INFORMATION
  Report Type: Spontaneous
  Country: GB (occurrence: GB)
  Receive Date: 20220914
  Receipt Date: 20220914
  Transmission Date: 20221027
  Serious: Yes (Other)
  Sender: FDA-Public Use
  Company Number: GB-009507513-2209GBR003789

PATIENT
  Age: 77 Year
  Sex: Female

DRUGS (2)
  1. PEMBROLIZUMAB [Suspect]
     Active Substance: PEMBROLIZUMAB
  2. LENVATINIB MESYLATE [Suspect]
     Active Substance: LENVATINIB MESYLATE
     Indication: Endometrial cancer

REACTIONS (6)
  - Hypothyroidism [Unknown]
  - Ascites [Recovering/Resolving]
  - Peritoneal disorder [Unknown]
  - Blood pressure abnormal [Unknown]
  - Fatigue [Recovered/Resolved]
  - Nausea [Recovered/Resolved]
